FAERS Safety Report 13155827 (Version 1)
Quarter: 2017Q1

REPORT INFORMATION
  Report Type: Spontaneous
  Country: US (occurrence: US)
  Receive Date: 20170126
  Receipt Date: 20170126
  Transmission Date: 20170428
  Serious: No
  Sender: FDA-Public Use
  Company Number: US-ROCHE-724886

PATIENT
  Age: 67 Year
  Sex: Male

DRUGS (2)
  1. VALIUM [Suspect]
     Active Substance: DIAZEPAM
     Indication: STIFF PERSON SYNDROME
     Dosage: FORM: PILL
     Route: 048
  2. VALIUM [Suspect]
     Active Substance: DIAZEPAM
     Dosage: DISSOLVED PILLS IN MOUTH LIKE LOZENGES (ADMINISTRATION ERROR)
     Route: 048

REACTIONS (3)
  - Drug ineffective [Unknown]
  - Head discomfort [Unknown]
  - Drug administration error [Unknown]
